FAERS Safety Report 26102805 (Version 1)
Quarter: 2025Q4

REPORT INFORMATION
  Report Type: Spontaneous
  Country: AU (occurrence: AU)
  Receive Date: 20251128
  Receipt Date: 20251128
  Transmission Date: 20260117
  Serious: Yes (Other)
  Sender: MERCK SHARP & DOHME LLC
  Company Number: None

PATIENT
  Age: 31 Year
  Sex: Female

DRUGS (8)
  1. ROCURONIUM BROMIDE [Suspect]
     Active Substance: ROCURONIUM BROMIDE
     Indication: Surgery
     Route: 065
     Dates: start: 20220619
  2. DEXAMETHASONE [Suspect]
     Active Substance: DEXAMETHASONE
     Indication: Surgery
     Route: 042
     Dates: start: 20220619
  3. CLONIDINE [Suspect]
     Active Substance: CLONIDINE
     Indication: Surgery
     Route: 065
     Dates: start: 20220619
  4. FENTANYL [Suspect]
     Active Substance: FENTANYL
     Indication: Surgery
     Route: 042
     Dates: start: 20220619
  5. GRANISETRON [Suspect]
     Active Substance: GRANISETRON
     Indication: Surgery
     Route: 065
     Dates: start: 20220619
  6. PARECOXIB SODIUM [Suspect]
     Active Substance: PARECOXIB SODIUM
     Indication: Surgery
     Route: 065
     Dates: start: 20220619
  7. PROPOFOL [Suspect]
     Active Substance: PROPOFOL
     Indication: Surgery
     Route: 065
     Dates: start: 20220619
  8. SUGAMMADEX [Suspect]
     Active Substance: SUGAMMADEX
     Indication: Surgery
     Route: 065
     Dates: start: 20220619

REACTIONS (3)
  - Stridor [Recovered/Resolved]
  - Rash [Unknown]
  - Swelling face [Unknown]

NARRATIVE: CASE EVENT DATE: 20220619
